FAERS Safety Report 24876458 (Version 2)
Quarter: 2025Q1

REPORT INFORMATION
  Report Type: Report from Study
  Country: FR (occurrence: FR)
  Receive Date: 20250123
  Receipt Date: 20250225
  Transmission Date: 20250409
  Serious: Yes (Death, Other)
  Sender: AUROBINDO
  Company Number: FR-AUROBINDO-AUR-APL-2025-003047

PATIENT

DRUGS (9)
  1. ALLOPURINOL [Suspect]
     Active Substance: ALLOPURINOL
     Indication: Toxic epidermal necrolysis
     Route: 065
  2. AMOXICILLIN [Suspect]
     Active Substance: AMOXICILLIN
     Indication: Toxic epidermal necrolysis
     Route: 065
  3. ESOMEPRAZOLE [Suspect]
     Active Substance: ESOMEPRAZOLE
     Indication: Toxic epidermal necrolysis
     Route: 065
  4. FEBUXOSTAT [Suspect]
     Active Substance: FEBUXOSTAT
     Indication: Toxic epidermal necrolysis
     Route: 065
  5. LAMOTRIGINE [Suspect]
     Active Substance: LAMOTRIGINE
     Indication: Toxic epidermal necrolysis
     Route: 065
  6. PANTOPRAZOLE [Suspect]
     Active Substance: PANTOPRAZOLE
     Indication: Toxic epidermal necrolysis
     Route: 065
  7. OXCARBAZEPINE [Suspect]
     Active Substance: OXCARBAZEPINE
     Indication: Toxic epidermal necrolysis
     Route: 065
  8. CARBAMAZEPINE [Suspect]
     Active Substance: CARBAMAZEPINE
     Indication: Toxic epidermal necrolysis
     Route: 065
  9. CODEINE [Suspect]
     Active Substance: CODEINE
     Indication: Toxic epidermal necrolysis
     Route: 065

REACTIONS (1)
  - Disease recurrence [Fatal]
